FAERS Safety Report 24223661 (Version 1)
Quarter: 2024Q3

REPORT INFORMATION
  Report Type: Spontaneous
  Country: US (occurrence: None)
  Receive Date: 20240818
  Receipt Date: 20240818
  Transmission Date: 20241017
  Serious: Yes (Death)
  Sender: Public
  Company Number: None

PATIENT
  Age: 58 Year
  Sex: Female

DRUGS (2)
  1. IBANDRONATE SODIUM [Suspect]
     Active Substance: IBANDRONATE SODIUM
     Indication: Osteoporosis
     Dosage: 150MG EVERY 30 DAYS ORAL?
     Route: 048
     Dates: start: 202111
  2. T4CROLIMUS [Concomitant]

REACTIONS (1)
  - Bladder cancer stage IV [None]

NARRATIVE: CASE EVENT DATE: 20240718
